FAERS Safety Report 5620433-5 (Version None)
Quarter: 2008Q1

REPORT INFORMATION
  Report Type: 
  Country: None (occurrence: None)
  Receive Date: 20080208
  Receipt Date: 20071105
  Transmission Date: 20080703
  Serious: No
  Sender: FDA-Public Use
  Company Number: US-BAYER-US-2007-041875

PATIENT
  Age: 24 Year
  Sex: Female
  Weight: 64 kg

DRUGS (3)
  1. MIRENA [Suspect]
     Indication: CONTRACEPTION
     Route: 015
     Dates: start: 20070101
  2. YAZ [Concomitant]
     Indication: ORAL CONTRACEPTION
  3. PRENATAL VITAMINS [Concomitant]

REACTIONS (7)
  - ABDOMINAL DISTENSION [None]
  - ALOPECIA [None]
  - ARTHRALGIA [None]
  - MOOD SWINGS [None]
  - POST PROCEDURAL HAEMORRHAGE [None]
  - POSTPARTUM DEPRESSION [None]
  - PROCEDURAL PAIN [None]
